FAERS Safety Report 19020037 (Version 1)
Quarter: 2021Q1

REPORT INFORMATION
  Report Type: Spontaneous
  Country: PT (occurrence: PT)
  Receive Date: 20210317
  Receipt Date: 20210317
  Transmission Date: 20210420
  Serious: Yes (Hospitalization, Disabling)
  Sender: FDA-Public Use
  Company Number: PT-BRISTOL-MYERS SQUIBB COMPANY-BMS-2021-023251

PATIENT
  Age: 80 Year
  Sex: Female

DRUGS (3)
  1. MICONAZOLE. [Suspect]
     Active Substance: MICONAZOLE
     Indication: ORAL CANDIDIASIS
     Dosage: 20MG/G FOR 3 DAYS
  2. COUMADIN [Suspect]
     Active Substance: WARFARIN SODIUM
     Indication: PRODUCT USED FOR UNKNOWN INDICATION
     Route: 065
  3. CLARITHROMYCIN. [Suspect]
     Active Substance: CLARITHROMYCIN
     Indication: PRODUCT USED FOR UNKNOWN INDICATION
     Dosage: 40 MG/ML GIVEN FOR 2 DAYS
     Route: 065

REACTIONS (6)
  - International normalised ratio increased [Unknown]
  - Drug interaction [Unknown]
  - Haemoglobin decreased [Unknown]
  - Tongue necrosis [Recovered/Resolved]
  - Speech disorder [Recovered/Resolved]
  - Tongue haematoma [Recovered/Resolved]
